FAERS Safety Report 12842786 (Version 1)
Quarter: 2016Q4

REPORT INFORMATION
  Report Type: Spontaneous
  Country: US (occurrence: US)
  Receive Date: 20161013
  Receipt Date: 20161013
  Transmission Date: 20170207
  Serious: No
  Sender: FDA-Public Use
  Company Number: US-PFIZER INC-2016476220

PATIENT
  Age: 27 Year
  Sex: Female
  Weight: 98.88 kg

DRUGS (3)
  1. BUPIVACAINE HCL [Suspect]
     Active Substance: BUPIVACAINE HYDROCHLORIDE
     Indication: CAESAREAN SECTION
     Dosage: 1.6ML, 12 MG INJECTION IN L3 -L4 LUMBAR INTRATHECAL
     Route: 037
     Dates: start: 20161010
  2. FENTANYL CITRATE. [Concomitant]
     Active Substance: FENTANYL CITRATE
     Dosage: 15 UG, UNK
  3. DURAMORPH [Concomitant]
     Active Substance: MORPHINE SULFATE
     Dosage: 100 UG, UNK

REACTIONS (1)
  - Drug ineffective [Unknown]

NARRATIVE: CASE EVENT DATE: 20161010
